FAERS Safety Report 6172409-X (Version None)
Quarter: 2009Q2

REPORT INFORMATION
  Report Type: 
  Country: None (occurrence: None)
  Receive Date: 20090424
  Receipt Date: 20090122
  Transmission Date: 20091009
  Serious: No
  Sender: FDA-Public Use
  Company Number: ALL1-2009-00169

PATIENT
  Age: 5 Year
  Sex: Male
  Weight: 19 kg

DRUGS (5)
  1. VYVANSE [Suspect]
     Indication: ATTENTION DEFICIT/HYPERACTIVITY DISORDER
     Dosage: 50 MG, 1X/DAY:QD, ORAL ; 50MG CAPSULE DISSOLVED IN WATER AND HALF ADMINISTERED, 1X/DAY:QD, ORAL
     Route: 048
     Dates: start: 20080801, end: 20080801
  2. VYVANSE [Suspect]
     Indication: ATTENTION DEFICIT/HYPERACTIVITY DISORDER
     Dosage: 50 MG, 1X/DAY:QD, ORAL ; 50MG CAPSULE DISSOLVED IN WATER AND HALF ADMINISTERED, 1X/DAY:QD, ORAL
     Route: 048
     Dates: start: 20080801, end: 20081101
  3. RISPERDAL [Concomitant]
  4. TRILEPTAL [Concomitant]
  5. TENEX [Concomitant]

REACTIONS (5)
  - ANOREXIA [None]
  - DISTURBANCE IN ATTENTION [None]
  - INCORRECT DOSE ADMINISTERED [None]
  - OFF LABEL USE [None]
  - WEIGHT DECREASED [None]
